FAERS Safety Report 13427288 (Version 1)
Quarter: 2017Q2

REPORT INFORMATION
  Report Type: Report from Study
  Country: KR (occurrence: KR)
  Receive Date: 20170411
  Receipt Date: 20170411
  Transmission Date: 20170830
  Serious: Yes (Other)
  Sender: FDA-Public Use
  Company Number: KR-ROCHE-548075

PATIENT

DRUGS (2)
  1. CAPECITABINE. [Suspect]
     Active Substance: CAPECITABINE
     Indication: GASTRIC CANCER
     Dosage: DAYS 1-14?EVERY THREE WEEK
     Route: 048
  2. OXALIPLATIN. [Suspect]
     Active Substance: OXALIPLATIN
     Indication: GASTRIC CANCER
     Dosage: OVER 2 HOURS, DAY 1
     Route: 042

REACTIONS (7)
  - Gastrointestinal haemorrhage [Unknown]
  - Haemorrhage [Unknown]
  - Leukopenia [Unknown]
  - Diarrhoea [Unknown]
  - Vomiting [Unknown]
  - Thrombocytopenia [Unknown]
  - Neutropenia [Unknown]
